FAERS Safety Report 6276496-X (Version None)
Quarter: 2009Q3

REPORT INFORMATION
  Report Type: 
  Country: None (occurrence: None)
  Receive Date: 20090722
  Receipt Date: 20090713
  Transmission Date: 20100115
  Serious: Yes (Other)
  Sender: FDA-Public Use
  Company Number: DE-NOVOPROD-289356

PATIENT
  Sex: Male

DRUGS (1)
  1. NORDITROPIN [Suspect]
     Indication: DRUG USE FOR UNKNOWN INDICATION
     Dates: start: 20081117

REACTIONS (2)
  - COUGH [None]
  - DYSPHONIA [None]
